FAERS Safety Report 8905299 (Version 2)
Quarter: 2012Q4

REPORT INFORMATION
  Report Type: 
  Country: US (occurrence: US)
  Receive Date: 20121109
  Receipt Date: 20121231
  Transmission Date: 20130627
  Serious: Yes (Hospitalization, Disabling, Other)
  Sender: FDA-Public Use
  Company Number: US-CELGENEUS-163-21880-12083265

PATIENT
  Age: 48 Year
  Sex: Female

DRUGS (37)
  1. REVLIMID [Suspect]
     Indication: MULTIPLE MYELOMA
     Dosage: 25 Milligram
     Route: 048
     Dates: start: 20120728
  2. REVLIMID [Suspect]
     Dosage: 10 Milligram
     Route: 048
     Dates: start: 20120904
  3. REVLIMID [Suspect]
     Dosage: 10 Milligram
     Route: 048
     Dates: start: 20121010
  4. BLOOD [Concomitant]
     Indication: FULL BLOOD COUNT DECREASED
     Route: 041
  5. ADVAIR [Concomitant]
     Indication: ASTHMA
     Dosage: 250/50 mcg, 1 puff
     Route: 065
  6. ADVAIR [Concomitant]
     Indication: PNEUMONIA
     Route: 065
  7. ALBUTEROL [Concomitant]
     Indication: ASTHMA
     Dosage: 360 Microgram
     Route: 065
  8. ALBUTEROL [Concomitant]
     Indication: PNEUMONIA
     Route: 065
  9. ASPIRIN [Concomitant]
     Indication: ANTICOAGULANT THERAPY
     Dosage: 81 Milligram
     Route: 048
  10. ASPIRIN [Concomitant]
     Indication: PNEUMONIA
     Route: 048
  11. CALCIUM [Concomitant]
     Indication: DRUG USE FOR UNKNOWN INDICATION
     Dosage: 1000 Milligram
     Route: 048
  12. CALCIUM [Concomitant]
     Indication: PNEUMONIA
     Route: 048
  13. COLACE [Concomitant]
     Indication: DRUG USE FOR UNKNOWN INDICATION
     Dosage: 2
     Route: 048
  14. COLACE [Concomitant]
     Indication: PNEUMONIA
     Route: 048
  15. PROTONIX [Concomitant]
     Indication: DRUG USE FOR UNKNOWN INDICATION
     Dosage: 40 Milligram
     Route: 065
  16. PROTONIX [Concomitant]
     Indication: PNEUMONIA
     Route: 065
  17. REGLAN [Concomitant]
     Indication: DRUG USE FOR UNKNOWN INDICATION
     Dosage: 10 Milligram
     Route: 065
  18. REGLAN [Concomitant]
     Indication: PNEUMONIA
     Route: 065
  19. ZOFRAN [Concomitant]
     Indication: DRUG USE FOR UNKNOWN INDICATION
     Dosage: 32 Milligram
     Route: 065
  20. ZOFRAN [Concomitant]
     Indication: PNEUMONIA
     Route: 065
  21. FOLIC ACID [Concomitant]
     Indication: DRUG USE FOR UNKNOWN INDICATION
     Dosage: 400 Microgram
     Route: 065
  22. FOLIC ACID [Concomitant]
     Indication: PNEUMONIA
     Route: 065
  23. NORCO [Concomitant]
     Indication: DRUG USE FOR UNKNOWN INDICATION
     Dosage: 5/325, 1-2 tabs
     Route: 065
  24. NORCO [Concomitant]
     Indication: PNEUMONIA
     Route: 065
  25. OXYCONTIN [Concomitant]
     Indication: DRUG USE FOR UNKNOWN INDICATION
     Dosage: 60 Milligram
     Route: 065
  26. OXYCONTIN [Concomitant]
     Indication: PNEUMONIA
     Route: 065
  27. POLY-IRON [Concomitant]
     Indication: DRUG USE FOR UNKNOWN INDICATION
     Dosage: 150 Milligram
     Route: 048
  28. POLY-IRON [Concomitant]
     Indication: PNEUMONIA
     Route: 048
  29. KCL [Concomitant]
     Indication: DRUG USE FOR UNKNOWN INDICATION
     Dosage: 25 Milliequivalents
     Route: 065
  30. KCL [Concomitant]
     Indication: PNEUMONIA
     Route: 065
  31. PROAIR HFA [Concomitant]
     Indication: DRUG USE FOR UNKNOWN INDICATION
     Dosage: 90 mcg/acutation
     Route: 065
  32. POTASSIUM CHLORIDE [Concomitant]
     Indication: DRUG USE FOR UNKNOWN INDICATION
     Dosage: 25 Milliequivalents
     Route: 048
  33. VITAMIN B-12 [Concomitant]
     Indication: DRUG USE FOR UNKNOWN INDICATION
     Dosage: 5000 Microgram
     Route: 060
  34. IPRATROPIUM BROMIDE [Concomitant]
     Indication: DRUG USE FOR UNKNOWN INDICATION
     Dosage: 1 spray each nostril
     Route: 045
  35. DEXAMETHASONE [Concomitant]
     Indication: DRUG USE FOR UNKNOWN INDICATION
     Dosage: 40 Milligram
     Route: 065
  36. ZOMETA [Concomitant]
     Indication: DRUG USE FOR UNKNOWN INDICATION
     Route: 065
  37. MORPHINE [Concomitant]
     Indication: PAIN
     Route: 065
     Dates: start: 2012

REACTIONS (6)
  - Anaemia [Not Recovered/Not Resolved]
  - Thrombocytopenia [Not Recovered/Not Resolved]
  - Neutropenia [Not Recovered/Not Resolved]
  - Pyrexia [Recovered/Resolved]
  - Pneumonia [Recovered/Resolved]
  - Breast mass [Recovered/Resolved]
